FAERS Safety Report 5237636-4 (Version None)
Quarter: 2007Q1

REPORT INFORMATION
  Report Type: 
  Country: None (occurrence: None)
  Receive Date: 20070214
  Receipt Date: 20070209
  Transmission Date: 20070707
  Serious: Yes (Hospitalization)
  Sender: FDA-Public Use
  Company Number: FR-BAYER-200710069BFR

PATIENT
  Age: 80 Year
  Sex: Female
  Weight: 48 kg

DRUGS (4)
  1. ADALAT [Suspect]
     Indication: UNEVALUABLE EVENT
     Dosage: UNIT DOSE: 10 MG
     Route: 048
     Dates: start: 20020615
  2. SECTRAL [Suspect]
     Indication: UNEVALUABLE EVENT
     Route: 048
     Dates: start: 20020615
  3. TEMESTA [Suspect]
     Indication: UNEVALUABLE EVENT
     Route: 048
     Dates: start: 19870615
  4. DIPRIVAN [Suspect]
     Indication: COLONOSCOPY
     Route: 042
     Dates: start: 20061020, end: 20061020

REACTIONS (5)
  - ABNORMAL BEHAVIOUR [None]
  - AGITATION [None]
  - CONFUSIONAL STATE [None]
  - DELIRIUM [None]
  - HALLUCINATION [None]
